FAERS Safety Report 16452211 (Version 1)
Quarter: 2019Q2

REPORT INFORMATION
  Report Type: Spontaneous
  Country: US (occurrence: US)
  Receive Date: 20190619
  Receipt Date: 20190619
  Transmission Date: 20190711
  Serious: No
  Sender: FDA-Public Use
  Company Number: US-ROCHE-2113162

PATIENT
  Sex: Male
  Weight: 79.45 kg

DRUGS (2)
  1. ACTEMRA [Suspect]
     Active Substance: TOCILIZUMAB
     Indication: PRODUCT USED FOR UNKNOWN INDICATION
     Dosage: ONGOING: NO
     Route: 042
     Dates: start: 2012, end: 2012
  2. REPATHA [Concomitant]
     Active Substance: EVOLOCUMAB
     Dosage: ONGOING: YES
     Route: 065
     Dates: start: 2015

REACTIONS (2)
  - No adverse event [Unknown]
  - Drug ineffective [Unknown]
